FAERS Safety Report 6631764-4 (Version None)
Quarter: 2010Q1

REPORT INFORMATION
  Report Type: 
  Country: None (occurrence: None)
  Receive Date: 20100312
  Receipt Date: 20100308
  Transmission Date: 20100710
  Serious: Yes (Hospitalization)
  Sender: FDA-Public Use
  Company Number: US-RB-026030-09

PATIENT
  Age: 51 Year
  Sex: Male

DRUGS (1)
  1. SUBOXONE [Suspect]
     Indication: DRUG USE FOR UNKNOWN INDICATION
     Dosage: DOSING INFORMATION UNKNOWN
     Route: 065

REACTIONS (10)
  - ARTHRALGIA [None]
  - BURSITIS INFECTIVE [None]
  - CARDIAC DISORDER [None]
  - CELLULITIS [None]
  - CHILLS [None]
  - GOUT [None]
  - HYPERHIDROSIS [None]
  - INFLUENZA [None]
  - JOINT SWELLING [None]
  - MALAISE [None]
